FAERS Safety Report 9166455 (Version 1)
Quarter: 2013Q1

REPORT INFORMATION
  Report Type: Spontaneous
  Country: SE (occurrence: SE)
  Receive Date: 20130315
  Receipt Date: 20130315
  Transmission Date: 20140127
  Serious: Yes (Other)
  Sender: FDA-Public Use
  Company Number: PHHY2013SE025031

PATIENT
  Sex: Female

DRUGS (4)
  1. LETROZOLE [Suspect]
     Indication: OSTEOPOROSIS
     Route: 048
     Dates: start: 2012, end: 2012
  2. TAMOXIFEN [Suspect]
     Indication: OSTEOPOROSIS
     Dates: start: 2012, end: 2012
  3. FARESTON [Suspect]
     Indication: OSTEOPOROSIS
     Route: 048
  4. IPREN [Suspect]
     Indication: NEURALGIA
     Route: 048
     Dates: start: 2012, end: 20130103

REACTIONS (2)
  - Angioedema [Unknown]
  - Lip swelling [Unknown]
